FAERS Safety Report 6273344-9 (Version None)
Quarter: 2009Q3

REPORT INFORMATION
  Report Type: 
  Country: None (occurrence: None)
  Receive Date: 20090715
  Receipt Date: 20090701
  Transmission Date: 20100115
  Serious: Yes (Disabling)
  Sender: FDA-Public Use
  Company Number: 8040250

PATIENT
  Age: 43 Year
  Sex: Female
  Weight: 58 kg

DRUGS (2)
  1. KEPPRA [Suspect]
     Indication: CONVULSION
     Dosage: 1000 MG /D PAR
     Route: 051
     Dates: start: 20071101, end: 20080401
  2. KEPPRA [Suspect]
     Indication: CONVULSION
     Dosage: 1000 MG 2/D; PAR
     Route: 051
     Dates: start: 20080401

REACTIONS (2)
  - MUSCLE CONTRACTURE [None]
  - MUSCLE SPASMS [None]
